FAERS Safety Report 7844940-X (Version None)
Quarter: 2011Q4

REPORT INFORMATION
  Report Type: 
  Country: None (occurrence: None)
  Receive Date: 20111025
  Receipt Date: 20100729
  Transmission Date: 20120403
  Serious: No
  Sender: FDA-Public Use
  Company Number: US-BAYER-201029631NA

PATIENT
  Age: 72 Year
  Sex: Female

DRUGS (7)
  1. CIPROFLOXACIN [Suspect]
     Indication: PRODUCT USED FOR UNKNOWN INDICATION
     Dosage: 500 MG, UNK
  2. NORVASC [Concomitant]
  3. CORADE [Concomitant]
  4. PLAVIX [Concomitant]
  5. CIPROFLOXACIN [Suspect]
     Dosage: 500 MG, UNK
  6. TOPROL-XL [Concomitant]
  7. LISINOPRIL [Concomitant]

REACTIONS (2)
  - MOBILITY DECREASED [None]
  - GAIT DISTURBANCE [None]
